FAERS Safety Report 17943500 (Version 1)
Quarter: 2020Q2

REPORT INFORMATION
  Report Type: Spontaneous
  Country: US (occurrence: US)
  Receive Date: 20200625
  Receipt Date: 20200625
  Transmission Date: 20200714
  Serious: Yes (Hospitalization, Other)
  Sender: FDA-Public Use
  Company Number: US-BIOVITRUM-2020SE08549

PATIENT
  Age: 1 Year
  Sex: Female
  Weight: 8 kg

DRUGS (1)
  1. SYNAGIS [Suspect]
     Active Substance: PALIVIZUMAB
     Indication: BRONCHOPULMONARY DYSPLASIA
     Route: 030
     Dates: start: 20191205

REACTIONS (1)
  - Respiratory syncytial virus bronchiolitis [Recovered/Resolved]

NARRATIVE: CASE EVENT DATE: 20191112
